FAERS Safety Report 16917123 (Version 1)
Quarter: 2019Q4

REPORT INFORMATION
  Report Type: Spontaneous
  Country: FR (occurrence: FR)
  Receive Date: 20191015
  Receipt Date: 20191015
  Transmission Date: 20200122
  Serious: Yes (Hospitalization)
  Sender: FDA-Public Use
  Company Number: FR-TEVA-2019-FR-1120644

PATIENT
  Age: 66 Year
  Sex: Male

DRUGS (1)
  1. CIPROFLOXACINE [Suspect]
     Active Substance: CIPROFLOXACIN
     Indication: INTERVERTEBRAL DISCITIS
     Dosage: 1500 MILLIGRAM PER DAY
     Route: 048
     Dates: start: 20190801, end: 20190905

REACTIONS (2)
  - Acute kidney injury [Recovering/Resolving]
  - Renal tubular necrosis [Recovering/Resolving]

NARRATIVE: CASE EVENT DATE: 20190906
